FAERS Safety Report 9109203 (Version 2)
Quarter: 2013Q1

REPORT INFORMATION
  Report Type: Report from Study
  Country: DE (occurrence: DE)
  Receive Date: 20130222
  Receipt Date: 20130320
  Transmission Date: 20140127
  Serious: Yes (Death)
  Sender: FDA-Public Use
  Company Number: DE-PFIZER INC-2013062484

PATIENT
  Age: 73 Year
  Sex: Male
  Weight: 98 kg

DRUGS (5)
  1. GEMTUZUMAB OZOGAMICIN [Suspect]
     Indication: ACUTE MYELOID LEUKAEMIA
     Dosage: 6.3 MG, UNK
     Dates: start: 20130205, end: 20130205
  2. IDARUBICIN HCL [Suspect]
     Indication: ACUTE MYELOID LEUKAEMIA
     Dosage: 25.2 MG, UNK
     Dates: start: 20130205, end: 20130207
  3. CYTARABINE [Suspect]
     Indication: ACUTE MYELOID LEUKAEMIA
     Dosage: 210 MG, UNK
     Dates: start: 20130205, end: 20130212
  4. ETOPOSIDE [Suspect]
     Indication: ACUTE MYELOID LEUKAEMIA
     Dosage: 210 MG, UNK
     Dates: start: 20130205, end: 20130207
  5. TRETINOIN [Concomitant]
     Indication: ACUTE MYELOID LEUKAEMIA
     Dosage: 100 MG, UNK
     Dates: start: 20130211, end: 20130211

REACTIONS (1)
  - Sepsis [Fatal]
